FAERS Safety Report 6260002-X (Version None)
Quarter: 2009Q3

REPORT INFORMATION
  Report Type: 
  Country: None (occurrence: None)
  Receive Date: 20090708
  Receipt Date: 20090701
  Transmission Date: 20100115
  Serious: Yes (Other)
  Sender: FDA-Public Use
  Company Number: US-ASTRAZENECA-2009UW12033

PATIENT
  Age: 816 Month
  Sex: Female
  Weight: 49.9 kg

DRUGS (3)
  1. ARIMIDEX [Suspect]
     Indication: BREAST CANCER
     Route: 048
     Dates: start: 20080215, end: 20090520
  2. NORVASC [Suspect]
     Indication: HYPERTENSION
     Route: 048
     Dates: start: 20090120, end: 20090427
  3. DILACOR XR [Suspect]

REACTIONS (1)
  - PERIPHERAL SENSORY NEUROPATHY [None]
